FAERS Safety Report 10101490 (Version 1)
Quarter: 2014Q2

REPORT INFORMATION
  Report Type: Spontaneous
  Country: US (occurrence: US)
  Receive Date: 20140424
  Receipt Date: 20140424
  Transmission Date: 20141212
  Serious: No
  Sender: FDA-Public Use
  Company Number: US-PFIZER INC-2014112751

PATIENT
  Age: 32 Year
  Sex: Female
  Weight: 93 kg

DRUGS (4)
  1. LYRICA [Suspect]
     Indication: NEURALGIA
     Dosage: 75 MG, DAILY
     Route: 048
     Dates: start: 20140415
  2. LYRICA [Suspect]
     Indication: INTERVERTEBRAL DISC PROTRUSION
     Dosage: 225 MG, DAILY
     Route: 048
  3. LYRICA [Suspect]
     Dosage: UNK
     Route: 048
  4. NORCO [Concomitant]
     Indication: INTERVERTEBRAL DISC PROTRUSION
     Dosage: [HYDROCODONE BITARTRATE 7.5MG/ ACETAMINOPHEN 325 MG], DAILY

REACTIONS (1)
  - Hypertension [Unknown]
